FAERS Safety Report 19272668 (Version 1)
Quarter: 2021Q2

REPORT INFORMATION
  Report Type: Report from Study
  Country: US (occurrence: US)
  Receive Date: 20210519
  Receipt Date: 20210519
  Transmission Date: 20210717
  Serious: Yes (Death)
  Sender: FDA-Public Use
  Company Number: US-TAIHO ONCOLOGY  INC-EU-2021-01505

PATIENT
  Sex: Male

DRUGS (12)
  1. HYDROCORTISONE. [Concomitant]
     Active Substance: HYDROCORTISONE
  2. HYDROCHLOROTHIAZIDE. [Concomitant]
     Active Substance: HYDROCHLOROTHIAZIDE
  3. HUMALOG KWIKPEN [Concomitant]
     Active Substance: INSULIN LISPRO
  4. LANTUS SOLOS [Concomitant]
  5. FINASTERIDE. [Concomitant]
     Active Substance: FINASTERIDE
  6. XARELTO [Concomitant]
     Active Substance: RIVAROXABAN
  7. PROAIR HFA AER [Concomitant]
     Dosage: AEROSOL
  8. INSULIN LISPRO [Concomitant]
     Active Substance: INSULIN LISPRO
  9. GEMFIBROZIL. [Concomitant]
     Active Substance: GEMFIBROZIL
  10. OLANZAPINE. [Concomitant]
     Active Substance: OLANZAPINE
  11. LISINOPRIL. [Concomitant]
     Active Substance: LISINOPRIL
  12. LONSURF [Suspect]
     Active Substance: TIPIRACIL HYDROCHLORIDE\TRIFLURIDINE
     Indication: RECTAL CANCER
     Dosage: UNKNOWN CYCLE
     Route: 048
     Dates: start: 20201207

REACTIONS (1)
  - Death [Fatal]
